FAERS Safety Report 10914212 (Version 1)
Quarter: 2015Q1

REPORT INFORMATION
  Report Type: Spontaneous
  Country: TW (occurrence: TW)
  Receive Date: 20150313
  Receipt Date: 20150313
  Transmission Date: 20150721
  Serious: Yes (Hospitalization)
  Sender: FDA-Public Use
  Company Number: PHHY2015TW027536

PATIENT
  Age: 65 Year
  Sex: Male

DRUGS (6)
  1. DOXORUBICIN [Suspect]
     Active Substance: DOXORUBICIN
     Indication: THERAPEUTIC EMBOLISATION
     Dosage: 40 MG, UNK
     Route: 065
     Dates: start: 20120622
  2. LIPIODOL [Suspect]
     Active Substance: ETHIODIZED OIL
     Indication: THERAPEUTIC EMBOLISATION
     Dosage: 20 ML
     Route: 065
     Dates: start: 20120622
  3. LIPIODOL [Suspect]
     Active Substance: ETHIODIZED OIL
     Indication: HEPATOCELLULAR CARCINOMA
  4. CEFAZOLIN [Suspect]
     Active Substance: CEFAZOLIN
     Indication: THERAPEUTIC EMBOLISATION
     Route: 065
     Dates: start: 20120622
  5. DOXORUBICIN [Suspect]
     Active Substance: DOXORUBICIN
     Indication: HEPATOCELLULAR CARCINOMA
  6. CEFAZOLIN [Suspect]
     Active Substance: CEFAZOLIN
     Indication: HEPATOCELLULAR CARCINOMA

REACTIONS (9)
  - Pyrexia [Recovered/Resolved]
  - Hyperuricaemia [Recovered/Resolved]
  - Hyperkalaemia [Recovered/Resolved]
  - Tumour lysis syndrome [Recovered/Resolved]
  - Renal impairment [Recovered/Resolved]
  - Acute kidney injury [Recovered/Resolved]
  - Dyspnoea [Recovered/Resolved]
  - Hypocalcaemia [Recovered/Resolved]
  - Urine output decreased [Recovered/Resolved]
